FAERS Safety Report 8883414 (Version 1)
Quarter: 2012Q4

REPORT INFORMATION
  Report Type: 
  Country: US (occurrence: US)
  Receive Date: 20121102
  Receipt Date: 20121102
  Transmission Date: 20130627
  Serious: No
  Sender: FDA-Public Use
  Company Number: US-ASTRAZENECA-2012SE79179

PATIENT
  Age: 53 Year
  Sex: Female
  Weight: 49.8 kg

DRUGS (9)
  1. ARIMIDEX [Suspect]
     Route: 048
  2. FASLODEX [Suspect]
     Indication: BREAST CANCER METASTATIC
     Route: 030
  3. CALCIUM [Concomitant]
  4. ADVAIR [Concomitant]
  5. MULTIVITAMIN [Concomitant]
  6. LACTULOSE [Concomitant]
  7. PERCOCET [Concomitant]
  8. SPIRIVA [Concomitant]
  9. ZOMETA [Concomitant]

REACTIONS (1)
  - Hypoaesthesia [Unknown]
